FAERS Safety Report 13603834 (Version 1)
Quarter: 2017Q2

REPORT INFORMATION
  Report Type: Report from Study
  Country: US (occurrence: US)
  Receive Date: 20170602
  Receipt Date: 20170602
  Transmission Date: 20170830
  Serious: Yes (Other)
  Sender: FDA-Public Use
  Company Number: US-CIPLA LTD.-2017US09721

PATIENT

DRUGS (3)
  1. GEMCITABINE [Suspect]
     Active Substance: GEMCITABINE\GEMCITABINE HYDROCHLORIDE
     Indication: PLASMA CELL MYELOMA RECURRENT
     Dosage: 1875 MG/M2, FOR 3 H FOR 2 DAYS
  2. MELPHALAN. [Suspect]
     Active Substance: MELPHALAN
     Indication: PLASMA CELL MYELOMA RECURRENT
     Dosage: 60 MG/M2,  PER DAY FOR 2 DAYS
     Route: 065
  3. BUSULFAN. [Suspect]
     Active Substance: BUSULFAN
     Indication: PLASMA CELL MYELOMA RECURRENT
     Dosage: AREA UNDER THE CURVE 4000 MICROMOL/L PER MIN PER DAY FOR 4 DAYS
     Route: 065

REACTIONS (1)
  - Dermatitis [Unknown]
